FAERS Safety Report 20490651 (Version 1)
Quarter: 2022Q1

REPORT INFORMATION
  Report Type: Report from Study
  Country: US (occurrence: US)
  Receive Date: 20220218
  Receipt Date: 20220218
  Transmission Date: 20220423
  Serious: Yes (Other)
  Sender: FDA-Public Use
  Company Number: US-JNJFOC-20220240965

PATIENT
  Age: 66 Year
  Sex: Female

DRUGS (14)
  1. SPRAVATO [Suspect]
     Active Substance: ESKETAMINE
     Indication: Depression
     Dosage: 3 DOSES
     Dates: start: 20190508, end: 20200224
  2. SPRAVATO [Suspect]
     Active Substance: ESKETAMINE
     Dosage: 2 DOSES
     Dates: start: 20200506, end: 20200513
  3. SPRAVATO [Suspect]
     Active Substance: ESKETAMINE
     Dosage: 4 DOSES
     Dates: start: 20200226, end: 20200311
  4. SPRAVATO [Suspect]
     Active Substance: ESKETAMINE
     Dosage: 70 DOSES
     Dates: start: 20200316, end: 20220104
  5. SPRAVATO [Suspect]
     Active Substance: ESKETAMINE
     Dosage: 1 DOSE
     Dates: start: 20220106, end: 20220106
  6. SPRAVATO [Suspect]
     Active Substance: ESKETAMINE
     Dosage: 7 DOSES
     Dates: start: 20220111, end: 20220201
  7. SPRAVATO [Suspect]
     Active Substance: ESKETAMINE
     Dosage: RECENT DOSE
     Dates: start: 20220203, end: 20220203
  8. COGENTIN [Concomitant]
     Active Substance: BENZTROPINE MESYLATE
  9. ADDERALL [Concomitant]
     Active Substance: AMPHETAMINE ASPARTATE\AMPHETAMINE SULFATE\DEXTROAMPHETAMINE SACCHARATE\DEXTROAMPHETAMINE SULFATE
     Dosage: XR
  10. TRAZODONE [Concomitant]
     Active Substance: TRAZODONE HYDROCHLORIDE
  11. LUVOX [Concomitant]
     Active Substance: FLUVOXAMINE MALEATE
     Dosage: ER
  12. KLONOPIN [Concomitant]
     Active Substance: CLONAZEPAM
  13. CAPLYTA [Concomitant]
     Active Substance: LUMATEPERONE
  14. LITHIUM [Concomitant]
     Active Substance: LITHIUM

REACTIONS (6)
  - Urosepsis [Unknown]
  - Urinary tract infection [Unknown]
  - Device issue [Unknown]
  - Mental status changes [Recovered/Resolved]
  - Sedation [Recovered/Resolved]
  - Dissociation [Recovered/Resolved]

NARRATIVE: CASE EVENT DATE: 20220203
